FAERS Safety Report 16430693 (Version 4)
Quarter: 2021Q1

REPORT INFORMATION
  Report Type: Report from Study
  Country: BR (occurrence: BR)
  Receive Date: 20190614
  Receipt Date: 20210205
  Transmission Date: 20210419
  Serious: Yes (Disabling, Other)
  Sender: FDA-Public Use
  Company Number: PHHY2019BR004313

PATIENT
  Age: 55 Year
  Sex: Female

DRUGS (5)
  1. COSENTYX [Suspect]
     Active Substance: SECUKINUMAB
     Indication: PSORIATIC ARTHROPATHY
     Dosage: 300 MG, QMO
     Route: 058
     Dates: start: 20181130
  2. CLONAZEPAM. [Suspect]
     Active Substance: CLONAZEPAM
     Indication: PRODUCT USED FOR UNKNOWN INDICATION
     Dosage: 2 DF, QD
     Route: 065
  3. COSENTYX [Suspect]
     Active Substance: SECUKINUMAB
     Dosage: 300 MG, QMO (2 INJECTIONS OF 150MG)
     Route: 065
     Dates: start: 20200310
  4. COSENTYX [Suspect]
     Active Substance: SECUKINUMAB
     Dosage: UNK
     Route: 065
     Dates: start: 20190510
  5. COSENTYX [Suspect]
     Active Substance: SECUKINUMAB
     Dosage: 300 MG (2 PENS), UNKNOWN
     Route: 065

REACTIONS (46)
  - Arthralgia [Not Recovered/Not Resolved]
  - Drug ineffective [Not Recovered/Not Resolved]
  - Movement disorder [Unknown]
  - Dysstasia [Unknown]
  - Panic disorder [Unknown]
  - Malaise [Unknown]
  - Dyspnoea [Not Recovered/Not Resolved]
  - Facial paralysis [Unknown]
  - Limb injury [Not Recovered/Not Resolved]
  - Weight increased [Not Recovered/Not Resolved]
  - Psoriasis [Not Recovered/Not Resolved]
  - Scab [Not Recovered/Not Resolved]
  - Joint effusion [Unknown]
  - Sleep disorder [Unknown]
  - Limb discomfort [Unknown]
  - Concomitant disease aggravated [Unknown]
  - Claustrophobia [Not Recovered/Not Resolved]
  - Headache [Unknown]
  - Visual impairment [Recovered/Resolved]
  - Pruritus [Not Recovered/Not Resolved]
  - Fluid retention [Unknown]
  - Swelling [Unknown]
  - Hand deformity [Unknown]
  - Sensitisation [Unknown]
  - Placental disorder [Unknown]
  - Migraine [Recovered/Resolved]
  - Placenta praevia haemorrhage [Unknown]
  - Fall [Not Recovered/Not Resolved]
  - Head discomfort [Unknown]
  - Premature delivery [Unknown]
  - Psoriatic arthropathy [Unknown]
  - Joint stiffness [Not Recovered/Not Resolved]
  - Peptic ulcer [Unknown]
  - Pain in extremity [Not Recovered/Not Resolved]
  - Dysstasia [Not Recovered/Not Resolved]
  - Obesity [Unknown]
  - Feeling abnormal [Unknown]
  - Maternal exposure during pregnancy [Unknown]
  - Gait inability [Unknown]
  - Bone disorder [Unknown]
  - Social anxiety disorder [Not Recovered/Not Resolved]
  - Placenta praevia [Unknown]
  - Pain [Unknown]
  - Oral discomfort [Unknown]
  - Depression [Not Recovered/Not Resolved]
  - Nervousness [Unknown]

NARRATIVE: CASE EVENT DATE: 20190606
